FAERS Safety Report 8534783-6 (Version None)
Quarter: 2012Q3

REPORT INFORMATION
  Report Type: 
  Country: None (occurrence: None)
  Receive Date: 20120724
  Receipt Date: 20120716
  Transmission Date: 20120928
  Serious: Yes (Hospitalization, Other)
  Sender: FDA-Public Use
  Company Number: GB-BAXTER-2012BAX011484

PATIENT
  Age: 13 Year
  Sex: Female
  Weight: 45 kg

DRUGS (19)
  1. KIOVIG [Suspect]
     Indication: HYPOGAMMAGLOBULINAEMIA
     Route: 041
     Dates: start: 20120530
  2. VITAMIN E [Concomitant]
     Route: 065
  3. SLO-PHYLLIN [Concomitant]
     Dosage: UNKNOWN
     Route: 065
  4. VITAMIN A AND D CONCENTRATE [Concomitant]
     Route: 065
  5. CEFTAZIDIME [Concomitant]
     Route: 042
     Dates: start: 20120528, end: 20120608
  6. COLECALCIFEROL [Concomitant]
     Dosage: UNKNOWN
     Route: 065
  7. TAURINE [Concomitant]
     Route: 065
  8. TOBRAMYCIN [Concomitant]
     Route: 042
     Dates: start: 20120528, end: 20120608
  9. KIOVIG [Suspect]
  10. AZITHROMYCIN [Concomitant]
     Route: 065
  11. OMEPRAZOLE [Concomitant]
     Dosage: UNKNOWN
     Route: 065
  12. PHYTONADIONE [Concomitant]
     Dosage: UNKNOWN
     Route: 065
  13. ALBUTEROL SULATE [Concomitant]
     Route: 065
  14. FLUTICASONE PROPIONATE/SALMETEROL [Concomitant]
     Route: 065
  15. DORNASE ALFA [Concomitant]
     Dosage: UNKNOWN
     Route: 065
  16. ACETAMINOPHEN [Concomitant]
     Dosage: UNKNOWN
     Route: 065
  17. URSODIOL [Concomitant]
     Route: 065
  18. TARGOCID [Suspect]
     Route: 042
     Dates: start: 20120528, end: 20120611
  19. CREON [Concomitant]
     Dosage: UNKNOWN
     Route: 065

REACTIONS (7)
  - APHAGIA [None]
  - RENAL IMPAIRMENT [None]
  - SERUM SICKNESS [None]
  - FEELING ABNORMAL [None]
  - DISSEMINATED INTRAVASCULAR COAGULATION [None]
  - PYREXIA [None]
  - MALAISE [None]
